FAERS Safety Report 16813251 (Version 3)
Quarter: 2020Q3

REPORT INFORMATION
  Report Type: Report from Study
  Country: US (occurrence: US)
  Receive Date: 20190916
  Receipt Date: 20200710
  Transmission Date: 20201102
  Serious: Yes (Death, Hospitalization, Other)
  Sender: FDA-Public Use
  Company Number: PHHY2019US213700

PATIENT
  Age: 62 Year
  Sex: Female
  Weight: 70 kg

DRUGS (6)
  1. LAMPRENE [Suspect]
     Active Substance: CLOFAZIMINE
     Indication: MYCOBACTERIUM ABSCESSUS INFECTION
     Dosage: 100 MG, QD
     Route: 048
     Dates: start: 20190531, end: 20190715
  2. AMIKACIN. [Suspect]
     Active Substance: AMIKACIN
     Indication: MYCOBACTERIUM ABSCESSUS INFECTION
     Dosage: 1300 MG, UNK
     Route: 065
     Dates: start: 20190501, end: 20190610
  3. TIGECYCLINE. [Suspect]
     Active Substance: TIGECYCLINE
     Indication: MYCOBACTERIUM ABSCESSUS INFECTION
     Dosage: 50 MG, UNK
     Route: 065
     Dates: start: 20190421, end: 20190715
  4. ERTAPENEM. [Suspect]
     Active Substance: ERTAPENEM SODIUM
     Indication: SERRATIA INFECTION
     Dosage: 1 G, UNK
     Route: 065
     Dates: start: 20190709, end: 20190715
  5. TEDIZOLID [Suspect]
     Active Substance: TEDIZOLID
     Indication: MYCOBACTERIUM ABSCESSUS INFECTION
     Dosage: 200 MG, UNK
     Route: 065
     Dates: start: 20190501, end: 20190715
  6. PREDNISONE. [Concomitant]
     Active Substance: PREDNISONE
     Indication: SYSTEMIC LUPUS ERYTHEMATOSUS
     Route: 065

REACTIONS (17)
  - Nosocomial infection [Unknown]
  - Hepatomegaly [Unknown]
  - Pneumonia serratia [Unknown]
  - Acute respiratory failure [Unknown]
  - Steatohepatitis [Unknown]
  - Herpes simplex [Unknown]
  - Failure to thrive [Unknown]
  - Delirium [Unknown]
  - Deep vein thrombosis [Unknown]
  - Malnutrition [Unknown]
  - Pleural effusion [Unknown]
  - White blood cell count increased [Not Recovered/Not Resolved]
  - Hepatitis cholestatic [Unknown]
  - Anxiety [Unknown]
  - Death [Fatal]
  - Hypotension [Unknown]
  - Anaemia [Unknown]

NARRATIVE: CASE EVENT DATE: 20190722
